FAERS Safety Report 8389674-0 (Version None)
Quarter: 2012Q2

REPORT INFORMATION
  Report Type: 
  Country: None (occurrence: None)
  Receive Date: 20120529
  Receipt Date: 20120516
  Transmission Date: 20120825
  Serious: Yes (Hospitalization)
  Sender: FDA-Public Use
  Company Number: JP-BRISTOL-MYERS SQUIBB COMPANY-15430465

PATIENT
  Age: 29 Year
  Sex: Male
  Weight: 51 kg

DRUGS (3)
  1. TRUVADA [Suspect]
     Indication: HIV TEST POSITIVE
     Dosage: 1DF=30 TABLETS.UNIT NOT SPECIFIED. FORMULATION IS TAB 26JAN-26JAN10
     Route: 048
     Dates: start: 20090601, end: 20100126
  2. EFAVIRENZ [Suspect]
     Indication: HIV TEST POSITIVE
     Dosage: TABS 200. 26JAN-26JAN2010 18000MG
     Route: 048
     Dates: start: 20090601, end: 20100126
  3. ISENTRESS [Concomitant]
     Indication: HIV INFECTION
     Route: 048
     Dates: start: 20100127

REACTIONS (8)
  - VOMITING [None]
  - SUICIDE ATTEMPT [None]
  - DRUG LEVEL INCREASED [None]
  - FAECES PALE [None]
  - MULTIPLE DRUG OVERDOSE INTENTIONAL [None]
  - BLOOD CREATINE PHOSPHOKINASE INCREASED [None]
  - PSYCHIATRIC SYMPTOM [None]
  - DIARRHOEA [None]
